FAERS Safety Report 5093383-3 (Version None)
Quarter: 2006Q3

REPORT INFORMATION
  Report Type: 
  Country: None (occurrence: None)
  Receive Date: 20060828
  Receipt Date: 20060809
  Transmission Date: 20061208
  Serious: Yes (Other)
  Sender: FDA-Public Use
  Company Number: 2006086140

PATIENT
  Age: 55 Year
  Sex: Female
  Weight: 50 kg

DRUGS (12)
  1. ZYVOX [Suspect]
     Indication: INFECTION
     Dosage: 1200 MG (600 MG,FREQUENCY: BID INTERVAL: EVERY DAY), INTRAVENOUS
     Route: 042
     Dates: start: 20060630, end: 20060706
  2. ZYVOX [Suspect]
     Indication: PSOAS ABSCESS
     Dosage: 1200 MG (600 MG,FREQUENCY: BID INTERVAL: EVERY DAY), INTRAVENOUS
     Route: 042
     Dates: start: 20060630, end: 20060706
  3. ZYVOX [Suspect]
     Indication: STAPHYLOCOCCAL INFECTION
     Dosage: 1200 MG (600 MG,FREQUENCY: BID INTERVAL: EVERY DAY), INTRAVENOUS
     Route: 042
     Dates: start: 20060630, end: 20060706
  4. WARFARIN SODIUM [Suspect]
     Indication: DEEP VEIN THROMBOSIS
     Dosage: (INTERVAL: EVERY DAY),ORAL
     Route: 048
     Dates: start: 20060626
  5. MEROPENEM (MEROPENEM) [Concomitant]
  6. PROCATEROL HCL [Concomitant]
  7. TRAMADOL HCL [Concomitant]
  8. GANATON (ITOPRIDE HYDROCHLORIDE) [Concomitant]
  9. TEICOPLANIN (TEICOPLANIN) [Concomitant]
  10. TOREM (TORASEMIDE) [Concomitant]
  11. MUCOSTA (REBAMIPIDE) [Concomitant]
  12. MEGACE [Concomitant]

REACTIONS (3)
  - HAEMORRHAGE [None]
  - INTERNATIONAL NORMALISED RATIO INCREASED [None]
  - PROTHROMBIN TIME PROLONGED [None]
